FAERS Safety Report 6112495-6 (Version None)
Quarter: 2009Q1

REPORT INFORMATION
  Report Type: 
  Country: None (occurrence: None)
  Receive Date: 20090312
  Receipt Date: 20090302
  Transmission Date: 20090719
  Serious: Yes (Hospitalization, Other)
  Sender: FDA-Public Use
  Company Number: FR-JNJFOC-20090106666

PATIENT
  Age: 83 Year
  Sex: Female
  Weight: 57 kg

DRUGS (8)
  1. REMINYL LP [Suspect]
     Indication: DEMENTIA ALZHEIMER'S TYPE
     Route: 048
  2. PERINDOPRIL ERBUMINE [Concomitant]
     Indication: HYPERTENSION
     Route: 048
  3. INDAPAMIDE [Concomitant]
     Indication: HYPERTENSION
     Route: 048
  4. ASPEGIC 325 [Concomitant]
     Indication: CEREBROVASCULAR ACCIDENT
     Route: 048
  5. DEDROGYL [Concomitant]
     Indication: VITAMIN D DEFICIENCY
     Route: 048
  6. CALCIUM [Concomitant]
  7. VITAMINE D [Concomitant]
  8. AUGMENTIN [Concomitant]

REACTIONS (5)
  - BRADYCARDIA [None]
  - FALL [None]
  - LOSS OF CONSCIOUSNESS [None]
  - MALAISE [None]
  - SYNCOPE [None]
